FAERS Safety Report 14457452 (Version 5)
Quarter: 2018Q3

REPORT INFORMATION
  Report Type: Spontaneous
  Country: US (occurrence: US)
  Receive Date: 20180130
  Receipt Date: 20180809
  Transmission Date: 20181010
  Serious: Yes (Other)
  Sender: FDA-Public Use
  Company Number: US-PFIZER INC-2017501917

PATIENT
  Age: 66 Year
  Sex: Female

DRUGS (6)
  1. DULOXETINE. [Concomitant]
     Active Substance: DULOXETINE
     Dosage: 60 MG, UNK
     Route: 048
  2. LYRICA [Suspect]
     Active Substance: PREGABALIN
     Indication: NECK PAIN
     Dosage: 75 MG, 3X/DAY
     Route: 048
  3. VALIUM [Concomitant]
     Active Substance: DIAZEPAM
     Dosage: 10 MG, 3X/DAY
     Route: 048
  4. LYRICA [Suspect]
     Active Substance: PREGABALIN
     Indication: BACK PAIN
     Dosage: 75 MG, 2X/DAY (TAKE 1 PILL BY MOUTH BIDX3 MONTHS)
     Route: 048
     Dates: start: 20180125
  5. AMBIEN [Concomitant]
     Active Substance: ZOLPIDEM TARTRATE
     Dosage: 10 MG, UNK
     Route: 048
  6. NORCO [Concomitant]
     Active Substance: ACETAMINOPHEN\HYDROCODONE BITARTRATE
     Dosage: 1 DF, 3X/DAY [HYDROCODONE BITARTRATE:5 MG]/[ACETAMINOPHEN: 325 MG]

REACTIONS (11)
  - Fibromyalgia [Unknown]
  - Paraesthesia [Unknown]
  - Gait disturbance [Unknown]
  - Hypersensitivity [Unknown]
  - Suicidal ideation [Unknown]
  - Pain [Unknown]
  - Dysstasia [Unknown]
  - Herpes zoster [Unknown]
  - Hypoaesthesia [Unknown]
  - Condition aggravated [Unknown]
  - Emotional disorder [Unknown]
